FAERS Safety Report 16647160 (Version 1)
Quarter: 2019Q3

REPORT INFORMATION
  Report Type: Spontaneous
  Country: US (occurrence: US)
  Receive Date: 20190729
  Receipt Date: 20190729
  Transmission Date: 20191004
  Serious: Yes (Other)
  Sender: FDA-Public Use
  Company Number: None

PATIENT
  Age: 64 Year
  Sex: Male
  Weight: 105 kg

DRUGS (1)
  1. PRIVIGEN [Suspect]
     Active Substance: HUMAN IMMUNOGLOBULIN G
     Indication: LUNG TRANSPLANT
     Dosage: ?          OTHER FREQUENCY:MONTHLY;?          THERAPY ONGOING: Y
     Route: 042
     Dates: start: 20190620, end: 20190620

REACTIONS (1)
  - Chills [None]

NARRATIVE: CASE EVENT DATE: 20190620
